FAERS Safety Report 9726783 (Version 1)
Quarter: 2013Q4

REPORT INFORMATION
  Report Type: Spontaneous
  Country: US (occurrence: US)
  Receive Date: 20131203
  Receipt Date: 20131203
  Transmission Date: 20140711
  Serious: No
  Sender: FDA-Public Use
  Company Number: US-NOVEN-13US006101

PATIENT
  Age: 46 Year
  Sex: Female

DRUGS (3)
  1. FENTANYL [Suspect]
     Indication: PAIN MANAGEMENT
     Dosage: 100 MCG/HR
     Route: 062
     Dates: start: 201301
  2. FENTANYL [Suspect]
     Dosage: 25 MCG/HR
     Dates: start: 2012, end: 2012
  3. OXYCODONE [Concomitant]
     Indication: BREAKTHROUGH PAIN
     Dosage: 30 MG, ONE TABLET EVERY 4-6 HOURS PRN
     Route: 048

REACTIONS (5)
  - Application site rash [Not Recovered/Not Resolved]
  - Application site erythema [Not Recovered/Not Resolved]
  - Application site pruritus [Not Recovered/Not Resolved]
  - Drug administration error [Not Recovered/Not Resolved]
  - Product quality issue [Not Recovered/Not Resolved]
